FAERS Safety Report 6136455-4 (Version None)
Quarter: 2009Q1

REPORT INFORMATION
  Report Type: 
  Country: None (occurrence: None)
  Receive Date: 20090330
  Receipt Date: 20090320
  Transmission Date: 20090719
  Serious: Yes (Death)
  Sender: FDA-Public Use
  Company Number: AU-AMGEN-QUU339541

PATIENT
  Sex: Male
  Weight: 5.3 kg

DRUGS (1)
  1. NEUPOGEN [Suspect]
     Indication: DRUG USE FOR UNKNOWN INDICATION
     Route: 064

REACTIONS (6)
  - CARDIAC FAILURE [None]
  - CONGENITAL RENAL DISORDER [None]
  - HEPATOMEGALY [None]
  - INTRA-UTERINE DEATH [None]
  - MATERNAL DRUGS AFFECTING FOETUS [None]
  - SKIN HAEMORRHAGE [None]
